FAERS Safety Report 9037195 (Version 1)
Quarter: 2013Q1

REPORT INFORMATION
  Report Type: Spontaneous
  Country: US (occurrence: None)
  Receive Date: 20130123
  Receipt Date: 20130123
  Transmission Date: 20140127
  Serious: Yes (Other)
  Sender: FDA-Public Use
  Company Number: None

PATIENT
  Age: 80 Year
  Sex: Female
  Weight: 78.02 kg

DRUGS (1)
  1. WARFARIN [Suspect]
     Indication: ANTICOAGULANT THERAPY
     Dosage: 1 PILL
     Dates: start: 20130117, end: 20130117

REACTIONS (8)
  - Product substitution issue [None]
  - Product quality issue [None]
  - Pruritus [None]
  - Cardiac flutter [None]
  - Abdominal discomfort [None]
  - Hypoaesthesia [None]
  - Tinnitus [None]
  - Chest pain [None]
